FAERS Safety Report 16211865 (Version 5)
Quarter: 2020Q1

REPORT INFORMATION
  Report Type: Spontaneous
  Country: US (occurrence: US)
  Receive Date: 20190418
  Receipt Date: 20200121
  Transmission Date: 20200409
  Serious: Yes (Other)
  Sender: FDA-Public Use
  Company Number: US-SA-2019SA107464

PATIENT
  Age: 67 Year
  Sex: Female

DRUGS (3)
  1. DUPIXENT [Suspect]
     Active Substance: DUPILUMAB
     Dosage: 300 MG, QOW
     Route: 058
     Dates: start: 2019, end: 2019
  2. DUPIXENT [Suspect]
     Active Substance: DUPILUMAB
     Dosage: 300 MG, QOW  UD, 300 MG/2ML
     Route: 058
     Dates: start: 2019
  3. DUPIXENT [Suspect]
     Active Substance: DUPILUMAB
     Indication: DERMATITIS ATOPIC
     Dosage: 600 MG, 1X
     Route: 058
     Dates: start: 201903, end: 201903

REACTIONS (8)
  - Body temperature increased [Unknown]
  - Pneumonia [Unknown]
  - Pleurisy [Unknown]
  - Malaise [Unknown]
  - Malaise [Unknown]
  - Abscess [Unknown]
  - Infection [Unknown]
  - Gastroenteritis viral [Unknown]

NARRATIVE: CASE EVENT DATE: 2019
